FAERS Safety Report 14233736 (Version 1)
Quarter: 2017Q4

REPORT INFORMATION
  Report Type: Spontaneous
  Country: US (occurrence: None)
  Receive Date: 20171128
  Receipt Date: 20171128
  Transmission Date: 20180321
  Serious: No
  Sender: FDA-Public Use
  Company Number: None

PATIENT
  Age: 48 Year
  Sex: Female

DRUGS (1)
  1. OCREVUS [Suspect]
     Active Substance: OCRELIZUMAB
     Indication: MULTIPLE SCLEROSIS
     Dosage: 300MG EVERY 6 MONTHS INTRAVENOUSLY
     Route: 042
     Dates: start: 20170522

REACTIONS (5)
  - Muscle spasticity [None]
  - Hypoaesthesia [None]
  - Disturbance in attention [None]
  - Paraesthesia [None]
  - Memory impairment [None]

NARRATIVE: CASE EVENT DATE: 20171127
